FAERS Safety Report 8177785-4 (Version None)
Quarter: 2012Q1

REPORT INFORMATION
  Report Type: 
  Country: None (occurrence: None)
  Receive Date: 20120301
  Receipt Date: 20120216
  Transmission Date: 20120608
  Serious: Yes (Death, Hospitalization)
  Sender: FDA-Public Use
  Company Number: CZ-ROCHE-1039243

PATIENT
  Age: 42 Year
  Sex: Female

DRUGS (8)
  1. HERCEPTIN [Suspect]
     Indication: BREAST CANCER
     Route: 042
     Dates: start: 20120124, end: 20120124
  2. DITHIADEN [Concomitant]
     Dates: start: 20120124, end: 20120124
  3. DOCETAXEL [Suspect]
     Indication: BREAST CANCER
     Route: 042
     Dates: start: 20120124, end: 20120124
  4. BLESIN [Concomitant]
  5. DEXAMETHASONE SODIUM PHOSPHATE [Concomitant]
     Dates: start: 20120124, end: 20120124
  6. ZOFRAN [Concomitant]
     Dates: start: 20120124, end: 20120124
  7. OMEPRAZOLE [Concomitant]
  8. DEXAMETHASONE [Concomitant]

REACTIONS (2)
  - ABDOMINAL PAIN [None]
  - SEPTIC SHOCK [None]
